FAERS Safety Report 5035221-0 (Version None)
Quarter: 2006Q2

REPORT INFORMATION
  Report Type: 
  Country: None (occurrence: None)
  Receive Date: 20060622
  Receipt Date: 20060622
  Transmission Date: 20061013
  Serious: Yes (Hospitalization, Other)
  Sender: FDA-Public Use
  Company Number: None

PATIENT
  Sex: Female

DRUGS (1)
  1. OPTIRAY 320 [Suspect]
     Dosage: 100ML ONCE IV
     Route: 042
     Dates: start: 20060523, end: 20060523

REACTIONS (4)
  - CHEST PAIN [None]
  - DYSPNOEA [None]
  - THROAT IRRITATION [None]
  - VOMITING [None]
